FAERS Safety Report 5674794-1 (Version None)
Quarter: 2008Q1

REPORT INFORMATION
  Report Type: 
  Country: None (occurrence: None)
  Receive Date: 20080320
  Receipt Date: 20080312
  Transmission Date: 20080703
  Serious: No
  Sender: FDA-Public Use
  Company Number: US-BAXTER-2008BH002204

PATIENT
  Sex: Female

DRUGS (1)
  1. HEPARIN SODIUM [Suspect]
     Indication: CYSTITIS INTERSTITIAL
     Dosage: DOSE UNIT:UNKNOWN
     Route: 043
     Dates: start: 20070301, end: 20070301

REACTIONS (9)
  - APHASIA [None]
  - EYE MOVEMENT DISORDER [None]
  - HYPOVENTILATION [None]
  - MOVEMENT DISORDER [None]
  - PALPITATIONS [None]
  - SYNCOPE [None]
  - UNRESPONSIVE TO STIMULI [None]
  - VERTIGO [None]
  - VOMITING [None]
